FAERS Safety Report 14606311 (Version 1)
Quarter: 2018Q1

REPORT INFORMATION
  Report Type: Spontaneous
  Country: US (occurrence: US)
  Receive Date: 20180307
  Receipt Date: 20180307
  Transmission Date: 20180509
  Serious: No
  Sender: FDA-Public Use
  Company Number: US-PHARMING-PHAUS2018000126

PATIENT

DRUGS (1)
  1. RUCONEST [Suspect]
     Active Substance: HUMAN C1-ESTERASE INHIBITOR
     Indication: HEREDITARY ANGIOEDEMA
     Dosage: 6300 IU, EVERY 3 DAYS AS NEEDED, MAX 2 DOSES IN 24 HOURS
     Route: 042
     Dates: start: 20171102

REACTIONS (2)
  - Overdose [Unknown]
  - Off label use [Unknown]
